FAERS Safety Report 7708840-8 (Version None)
Quarter: 2011Q3

REPORT INFORMATION
  Report Type: 
  Country: None (occurrence: None)
  Receive Date: 20110825
  Receipt Date: 20110816
  Transmission Date: 20111222
  Serious: Yes (Hospitalization, Other)
  Sender: FDA-Public Use
  Company Number: JP-BAYER-201013680BYL

PATIENT
  Age: 60 Year
  Sex: Male
  Weight: 64 kg

DRUGS (23)
  1. LACTULOSE [Concomitant]
     Dosage: 20 ML, TID
     Route: 048
  2. NEXAVAR [Suspect]
     Indication: HEPATIC NEOPLASM MALIGNANT
     Dosage: 800 MG (DAILY DOSE), , ORAL
     Route: 048
     Dates: start: 20080828, end: 20080831
  3. CLEMASTINE FUMARATE [Concomitant]
     Dosage: 1 MG, BID
     Route: 048
  4. KANAMYCIN [Concomitant]
     Dosage: 500 MG, QID
     Route: 048
  5. LENDORMIN DAINIPPO [Concomitant]
     Dosage: 0.5 MG, QD
     Route: 048
  6. MUCOSTA [Concomitant]
     Dosage: 100 MG, TID
     Route: 048
  7. LASIX [Concomitant]
     Dosage: 20 MG, BID
     Route: 048
  8. LENDORMIN [Concomitant]
     Dosage: 0.5 MG, QD
     Route: 048
  9. LOXONIN [Concomitant]
     Dosage: 60 MG, TID
     Route: 048
  10. ALDACTONE [Concomitant]
     Dosage: 25 MG, BID
     Route: 048
  11. LASIX [Concomitant]
     Dosage: 20 MG, QD
     Route: 048
  12. ALDACTONE [Concomitant]
     Dosage: 25 MG, QD
     Route: 048
  13. LENDORMIN [Concomitant]
     Dosage: 0.25 MG, QD
     Route: 048
  14. LENDORMIN DAINIPPO [Concomitant]
     Dosage: 0.25 MG, QD
     Route: 048
  15. LIVACT [Concomitant]
     Dosage: 4.15 G, TID
     Route: 048
  16. ALDACTONE [Concomitant]
     Dosage: 25 MG, QD
     Route: 048
  17. URSO 250 [Concomitant]
     Dosage: 200 MG, TID
     Route: 048
  18. GASMOTIN [Concomitant]
     Dosage: 5 MG, TID
     Route: 048
  19. LASIX [Concomitant]
     Dosage: 20 MG, QD
     Route: 048
  20. LANSOPRAZOLE [Concomitant]
     Dosage: 15 MG, BID
     Route: 048
  21. MAGNESIUM OXIDE [Concomitant]
     Dosage: 1 G, TID
     Route: 048
  22. MARZULENE S [Concomitant]
     Dosage: 0.5 MG, TID
     Route: 048
  23. MARZULENE S [Concomitant]
     Dosage: 0.5 MG, TID
     Route: 048

REACTIONS (3)
  - MELAENA [None]
  - HEPATIC ENCEPHALOPATHY [None]
  - GASTROINTESTINAL EROSION [None]
